FAERS Safety Report 8025705-5 (Version None)
Quarter: 2012Q1

REPORT INFORMATION
  Report Type: 
  Country: None (occurrence: None)
  Receive Date: 20120105
  Receipt Date: 20111109
  Transmission Date: 20120608
  Serious: No
  Sender: FDA-Public Use
  Company Number: US-ABBOTT-09P-163-0578569-00

PATIENT
  Sex: Female

DRUGS (4)
  1. SYNTHROID [Suspect]
  2. SYNTHROID [Suspect]
     Indication: HYPOTHYROIDISM
     Dates: end: 20111001
  3. SYNTHROID [Suspect]
  4. SYNTHROID [Suspect]
     Dates: start: 20111001

REACTIONS (4)
  - MYALGIA [None]
  - HEADACHE [None]
  - ALOPECIA [None]
  - HAIR TEXTURE ABNORMAL [None]
